FAERS Safety Report 23806750 (Version 2)
Quarter: 2024Q4

REPORT INFORMATION
  Report Type: Report from Study
  Country: US (occurrence: US)
  Receive Date: 20240502
  Receipt Date: 20241030
  Transmission Date: 20250114
  Serious: Yes (Other)
  Sender: ROCHE
  Company Number: US-ROCHE-2671944

PATIENT
  Age: 64 Year
  Sex: Male

DRUGS (2)
  1. OCREVUS [Suspect]
     Active Substance: OCRELIZUMAB
     Indication: Relapsing multiple sclerosis
     Route: 042
     Dates: start: 20180828
  2. OCREVUS [Suspect]
     Active Substance: OCRELIZUMAB
     Indication: Primary progressive multiple sclerosis

REACTIONS (9)
  - Arthralgia [Unknown]
  - Headache [Unknown]
  - Gait disturbance [Unknown]
  - Gait disturbance [Unknown]
  - Fall [Unknown]
  - Memory impairment [Unknown]
  - Dysgraphia [Unknown]
  - Infection susceptibility increased [Unknown]
  - Rib fracture [Unknown]

NARRATIVE: CASE EVENT DATE: 20240801
